FAERS Safety Report 17922884 (Version 5)
Quarter: 2020Q4

REPORT INFORMATION
  Report Type: Spontaneous
  Country: US (occurrence: US)
  Receive Date: 20200622
  Receipt Date: 20201026
  Transmission Date: 20210113
  Serious: No
  Sender: FDA-Public Use
  Company Number: US-PFIZER INC-2020176161

PATIENT
  Age: 70 Year
  Sex: Female
  Weight: 90.7 kg

DRUGS (5)
  1. GENOTROPIN [Suspect]
     Active Substance: SOMATROPIN
     Indication: BRAIN INJURY
     Dosage: 0.3 MG, ALTERNATE DAY
     Dates: start: 20200429, end: 2020
  2. GENOTROPIN [Suspect]
     Active Substance: SOMATROPIN
     Indication: GROWTH HORMONE DEFICIENCY
     Dosage: 0.2 MG, ALTERNATE DAY
     Dates: start: 20200429, end: 2020
  3. GENOTROPIN [Suspect]
     Active Substance: SOMATROPIN
     Dosage: 0.2 MG, ALTERNATE DAY
  4. GENOTROPIN [Suspect]
     Active Substance: SOMATROPIN
     Dosage: 0.2 MG, DAILY
  5. GENOTROPIN [Suspect]
     Active Substance: SOMATROPIN
     Dosage: 0.4 MG, ALTERNATE DAY

REACTIONS (7)
  - Product dose omission issue [Unknown]
  - Product prescribing error [Unknown]
  - Intentional product misuse [Unknown]
  - Memory impairment [Unknown]
  - Device issue [Unknown]
  - Malaise [Recovered/Resolved]
  - Incorrect dose administered by device [Unknown]

NARRATIVE: CASE EVENT DATE: 2020
